FAERS Safety Report 6348359-2 (Version None)
Quarter: 2009Q3

REPORT INFORMATION
  Report Type: 
  Country: None (occurrence: None)
  Receive Date: 20090908
  Receipt Date: 20090820
  Transmission Date: 20100115
  Serious: Yes (Death, Hospitalization)
  Sender: FDA-Public Use
  Company Number: 2009AL001273

PATIENT
  Age: 50 Year
  Sex: Male

DRUGS (33)
  1. DIGOXIN [Suspect]
     Dosage: 0.25MG, DAILY, PO
     Route: 048
  2. DIGOXIN [Suspect]
     Dosage: 0.125MG, DAILY, PO
     Route: 048
  3. QUINIDEX [Concomitant]
  4. VASOTEC [Concomitant]
  5. ISMO [Concomitant]
  6. PREDNISONE [Concomitant]
  7. ASPIRIN [Concomitant]
  8. COUMADIN [Concomitant]
  9. ZOCOR [Concomitant]
  10. CAPTOPRIL [Concomitant]
  11. GLUCOVANCE [Concomitant]
  12. COREG [Concomitant]
  13. SPIRIVA [Concomitant]
  14. SOMA [Concomitant]
  15. ISOSORBIDE [Concomitant]
  16. PRILOSEC [Concomitant]
  17. LASIX [Concomitant]
  18. GLYBURIDE [Concomitant]
  19. SYNTHOID [Concomitant]
  20. XANAX [Concomitant]
  21. SIMVASTATIN [Concomitant]
  22. LANTUS [Concomitant]
  23. JENUVIA [Concomitant]
  24. KAY CIEL DURA-TABS [Concomitant]
  25. ACTOS [Concomitant]
  26. AMIODARONE HCL [Concomitant]
  27. CARISOPRODOL [Concomitant]
  28. LEVOTHYROXINE SODIUM [Concomitant]
  29. POTASSIUM CHLORIDE [Concomitant]
  30. PRILOSEC [Concomitant]
  31. ADVAIR HFA [Concomitant]
  32. METOLAZONE [Concomitant]
  33. ZOCAR [Concomitant]

REACTIONS (26)
  - ALCOHOL ABUSE [None]
  - ALOPECIA [None]
  - AORTIC BYPASS [None]
  - ARTERIOSCLEROSIS [None]
  - ATRIAL FIBRILLATION [None]
  - ATRIAL FLUTTER [None]
  - BLOOD GLUCOSE DECREASED [None]
  - CARDIAC FAILURE CONGESTIVE [None]
  - CEREBROVASCULAR ACCIDENT [None]
  - CHEST PAIN [None]
  - DIABETES MELLITUS [None]
  - DYSPNOEA [None]
  - ECONOMIC PROBLEM [None]
  - GAIT DISTURBANCE [None]
  - HEART RATE INCREASED [None]
  - LETHARGY [None]
  - MULTIPLE INJURIES [None]
  - MYOCARDIAL INFARCTION [None]
  - OEDEMA PERIPHERAL [None]
  - PERICARDITIS [None]
  - PLEURAL EFFUSION [None]
  - PULMONARY HILUM MASS [None]
  - PULSE ABSENT [None]
  - SPEECH DISORDER [None]
  - TOBACCO USER [None]
  - UPPER GASTROINTESTINAL HAEMORRHAGE [None]
